FAERS Safety Report 8236447-5 (Version None)
Quarter: 2012Q1

REPORT INFORMATION
  Report Type: 
  Country: None (occurrence: None)
  Receive Date: 20120327
  Receipt Date: 20120316
  Transmission Date: 20120608
  Serious: Yes (Other)
  Sender: FDA-Public Use
  Company Number: US-SANOFI-AVENTIS-2012SA012418

PATIENT
  Age: 48 Year
  Sex: Female
  Weight: 97.27 kg

DRUGS (13)
  1. LOVASTATIN [Concomitant]
  2. LANTUS [Suspect]
     Dosage: DOSE:60 UNIT(S)
     Route: 058
     Dates: start: 20110501
  3. TRAMADOL HCL [Concomitant]
  4. OMEPRAZOLE [Concomitant]
  5. AMLODIPINE BESYLATE [Concomitant]
  6. METFORMIN HCL [Concomitant]
  7. ALBUTEROL [Concomitant]
  8. SOLOSTAR [Suspect]
     Dates: start: 20110501
  9. GABAPENTIN [Concomitant]
  10. ASPIRIN [Concomitant]
  11. LORAZEPAM [Concomitant]
     Dosage: 1 TO 2 A DAY
  12. NITROSTAT [Concomitant]
  13. VESICARE [Concomitant]

REACTIONS (5)
  - INJECTION SITE HAEMORRHAGE [None]
  - INJECTION SITE HAEMATOMA [None]
  - CELLULITIS [None]
  - BLOOD GLUCOSE INCREASED [None]
  - INJECTION SITE PAIN [None]
